FAERS Safety Report 7547136 (Version 3)
Quarter: 2013Q4

REPORT INFORMATION
  Report Type: Spontaneous
  Country: US (occurrence: US)
  Receive Date: 20100819
  Receipt Date: 20131114
  Transmission Date: 20140711
  Serious: Yes (Life-Threatening, Hospitalization)
  Sender: FDA-Public Use
  Company Number: US-BAYER-201021045NA

PATIENT
  Age: 25 Year
  Sex: Female

DRUGS (1)
  1. MIRENA [Suspect]
     Indication: INTRA-UTERINE CONTRACEPTIVE DEVICE
     Dosage: 20 MCG/24HR, CONT
     Route: 015
     Dates: start: 201001, end: 20111128

REACTIONS (34)
  - Uterine perforation [None]
  - Device dislocation [None]
  - Pain [None]
  - Injury [None]
  - General physical health deterioration [None]
  - Pregnancy with contraceptive device [Recovered/Resolved]
  - Drug ineffective [None]
  - Vomiting in pregnancy [Recovered/Resolved]
  - Nausea [Recovered/Resolved]
  - Procedural pain [None]
  - Post procedural haemorrhage [None]
  - Headache [None]
  - Abortion spontaneous [None]
  - Abdominal pain [None]
  - Abdominal pain [None]
  - Abdominal pain [None]
  - Abdominal discomfort [None]
  - Renal pain [None]
  - Dizziness [None]
  - Dizziness [None]
  - Diarrhoea [None]
  - Malaise [None]
  - Feeling of body temperature change [None]
  - Tremor [None]
  - Mood swings [None]
  - Anger [None]
  - Hostility [None]
  - Depression [None]
  - Bipolar disorder [None]
  - Scar [None]
  - Deformity [None]
  - Emotional distress [None]
  - Anxiety [None]
  - Anhedonia [None]
